FAERS Safety Report 4521959-8 (Version None)
Quarter: 2004Q4

REPORT INFORMATION
  Report Type: 
  Country: None (occurrence: None)
  Receive Date: 20041206
  Receipt Date: 20041123
  Transmission Date: 20050328
  Serious: Yes (Hospitalization, Other)
  Sender: FDA-Public Use
  Company Number: 2004098455

PATIENT
  Age: 83 Year
  Sex: Female

DRUGS (5)
  1. FLUCONAZOLE [Suspect]
     Indication: CANDIDIASIS
     Dosage: 50 MG (50 MG,1 IN 1 D), ORAL
     Route: 048
     Dates: start: 20040101, end: 20041101
  2. DIOVAN HCT [Concomitant]
  3. ACETYLSCYSTEINE (ACETYLSCYSTEINE) [Concomitant]
  4. APOREX (DEXTROPROPOXYPHENE HYDROCHLORIDE, PARACETAMOL) [Concomitant]
  5. DICLOFENAC SODIUM [Concomitant]

REACTIONS (4)
  - GASTROINTESTINAL DISORDER [None]
  - HEADACHE [None]
  - RENAL FAILURE [None]
  - RESPIRATORY FAILURE [None]
